FAERS Safety Report 8952760 (Version 1)
Quarter: 2012Q4

REPORT INFORMATION
  Report Type: 
  Country: US (occurrence: US)
  Receive Date: 20121205
  Receipt Date: 20121205
  Transmission Date: 20130627
  Serious: Yes (Death, Hospitalization, Other)
  Sender: FDA-Public Use
  Company Number: US-ASTELLAS-2012US011736

PATIENT
  Sex: Male

DRUGS (1)
  1. TARCEVA [Suspect]
     Indication: LUNG CARCINOMA CELL TYPE UNSPECIFIED STAGE 0
     Dosage: 150 mg, UID/QD
     Route: 048
     Dates: start: 200710

REACTIONS (8)
  - Cognitive disorder [Unknown]
  - Non-small cell lung cancer metastatic [Fatal]
  - Dyspnoea [Unknown]
  - Asthenia [Unknown]
  - Orthopnoea [Unknown]
  - Cough [Unknown]
  - Acne [Unknown]
  - Decreased appetite [Unknown]
